FAERS Safety Report 25742534 (Version 1)
Quarter: 2025Q3

REPORT INFORMATION
  Report Type: Report from Study
  Country: AE (occurrence: AE)
  Receive Date: 20250829
  Receipt Date: 20250829
  Transmission Date: 20251020
  Serious: Yes (Hospitalization)
  Sender: ALEXION PHARMACEUTICALS
  Company Number: AE-AstraZeneca-CH-00939022A

PATIENT
  Sex: Female

DRUGS (1)
  1. OLAPARIB [Suspect]
     Active Substance: OLAPARIB
     Indication: Ovarian cancer
     Dosage: 300 MILLIGRAM, Q12H
     Dates: start: 202303

REACTIONS (4)
  - Fluid retention [Unknown]
  - Immunodeficiency [Unknown]
  - Electrolyte imbalance [Unknown]
  - Anaemia [Unknown]

NARRATIVE: CASE EVENT DATE: 20250801
